FAERS Safety Report 13896014 (Version 1)
Quarter: 2017Q3

REPORT INFORMATION
  Report Type: Spontaneous
  Country: US (occurrence: US)
  Receive Date: 20170822
  Receipt Date: 20170822
  Transmission Date: 20171127
  Serious: Yes (Disabling, Other)
  Sender: FDA-Public Use
  Company Number: None

PATIENT
  Age: 53 Year
  Sex: Female
  Weight: 56.7 kg

DRUGS (11)
  1. PREMARIN ESTROGEN CREAM [Concomitant]
  2. HUMIRA [Suspect]
     Active Substance: ADALIMUMAB
     Indication: PSORIATIC ARTHROPATHY
     Dosage: ?          QUANTITY:1 INJECTION(S);OTHER FREQUENCY:EVERY 2 WEEKS;OTHER ROUTE:SELF-INJECTION PEN?
     Dates: start: 20110811
  3. NEURONTIN [Concomitant]
     Active Substance: GABAPENTIN
  4. SKELAXIN [Concomitant]
     Active Substance: METAXALONE
  5. HUMIRA [Concomitant]
     Active Substance: ADALIMUMAB
  6. VALIUM [Concomitant]
     Active Substance: DIAZEPAM
  7. CLONAZEPAM. [Concomitant]
     Active Substance: CLONAZEPAM
  8. SUDAFED [Concomitant]
     Active Substance: PSEUDOEPHEDRINE HYDROCHLORIDE
  9. CYMBALTA [Concomitant]
     Active Substance: DULOXETINE HYDROCHLORIDE
  10. ZYRTEC [Concomitant]
     Active Substance: CETIRIZINE HYDROCHLORIDE
  11. IBUPROFEN. [Concomitant]
     Active Substance: IBUPROFEN

REACTIONS (1)
  - Nerve injury [None]

NARRATIVE: CASE EVENT DATE: 20130615
